FAERS Safety Report 6477771-6 (Version None)
Quarter: 2009Q4

REPORT INFORMATION
  Report Type: 
  Country: None (occurrence: None)
  Receive Date: 20091207
  Receipt Date: 20091202
  Transmission Date: 20100525
  Serious: Yes (Death, Other)
  Sender: FDA-Public Use
  Company Number: US-ELI_LILLY_AND_COMPANY-US200912000941

PATIENT
  Age: 75 Year
  Sex: Male

DRUGS (1)
  1. EFFIENT [Suspect]
     Dosage: 60 MG, OTHER
     Dates: start: 20091120, end: 20091120

REACTIONS (2)
  - DEVICE CONNECTION ISSUE [None]
  - VESSEL PUNCTURE SITE HAEMORRHAGE [None]
